FAERS Safety Report 8306380-9 (Version None)
Quarter: 2012Q2

REPORT INFORMATION
  Report Type: 
  Country: None (occurrence: None)
  Receive Date: 20120423
  Receipt Date: 20120419
  Transmission Date: 20120825
  Serious: Yes (Hospitalization, Other)
  Sender: FDA-Public Use
  Company Number: US-MERCK-1111USA02483

PATIENT
  Age: 71 Year
  Sex: Female

DRUGS (4)
  1. FOSAMAX [Suspect]
     Route: 048
     Dates: start: 20040101
  2. FOSAMAX [Suspect]
     Route: 065
     Dates: end: 20100101
  3. FOSAMAX [Suspect]
     Indication: OSTEOPOROSIS
     Route: 048
     Dates: end: 20041013
  4. FOSAMAX [Suspect]
     Route: 048
     Dates: start: 20041014

REACTIONS (29)
  - CYSTOCELE [None]
  - OSTEOPENIA [None]
  - URINARY TRACT DISORDER [None]
  - CARDIAC DISORDER [None]
  - CHEST PAIN [None]
  - SQUAMOUS CELL CARCINOMA OF SKIN [None]
  - FLATULENCE [None]
  - DIZZINESS [None]
  - ENTEROCELE [None]
  - HYPOKALAEMIA [None]
  - GLUCOSE TOLERANCE IMPAIRED [None]
  - HYPERLIPIDAEMIA [None]
  - CATARACT [None]
  - FIBROCYSTIC BREAST DISEASE [None]
  - HYPOTHYROIDISM [None]
  - HYPERALDOSTERONISM [None]
  - CYSTITIS [None]
  - TOOTH DISORDER [None]
  - OSTEOARTHRITIS [None]
  - HYPERADRENALISM [None]
  - DENTAL CARIES [None]
  - OSTEONECROSIS OF JAW [None]
  - RECTOCELE [None]
  - HYPERTENSION [None]
  - EXOSTOSIS [None]
  - BREAST MASS [None]
  - HYPERCHOLESTEROLAEMIA [None]
  - OSTEOPOROSIS [None]
  - ORAL INFECTION [None]
